FAERS Safety Report 6780730-7 (Version None)
Quarter: 2010Q2

REPORT INFORMATION
  Report Type: 
  Country: None (occurrence: None)
  Receive Date: 20100621
  Receipt Date: 20100609
  Transmission Date: 20101027
  Serious: Yes (Death, Hospitalization)
  Sender: FDA-Public Use
  Company Number: PL-JNJFOC-20100408193

PATIENT
  Sex: Female
  Weight: 63 kg

DRUGS (9)
  1. GOLIMUMAB [Suspect]
     Indication: RHEUMATOID ARTHRITIS
     Route: 058
  2. GOLIMUMAB [Suspect]
     Route: 058
  3. METHOTREXATE [Suspect]
     Indication: RHEUMATOID ARTHRITIS
     Route: 048
  4. PLACEBO [Suspect]
     Indication: RHEUMATOID ARTHRITIS
     Route: 048
  5. MELOXICAM [Concomitant]
     Route: 048
  6. PERINDOPRIL [Concomitant]
     Route: 048
  7. HYDROCHLOROTHIAZIDE [Concomitant]
     Route: 048
  8. OMEPRAZOLE [Concomitant]
     Route: 048
  9. AMLODIPINE [Concomitant]
     Route: 048

REACTIONS (2)
  - RHEUMATOID ARTHRITIS [None]
  - SEPSIS [None]
